FAERS Safety Report 7309509-4 (Version None)
Quarter: 2011Q1

REPORT INFORMATION
  Report Type: 
  Country: None (occurrence: None)
  Receive Date: 20110223
  Receipt Date: 20110216
  Transmission Date: 20110831
  Serious: Yes (Other)
  Sender: FDA-Public Use
  Company Number: US-US-EMD SERONO, INC.-7042907

PATIENT
  Sex: Male

DRUGS (1)
  1. REBIF [Suspect]
     Indication: MULTIPLE SCLEROSIS
     Route: 058
     Dates: start: 20030826

REACTIONS (5)
  - RENAL CELL CARCINOMA [None]
  - MULTIPLE SCLEROSIS RELAPSE [None]
  - BURNING SENSATION [None]
  - NEURALGIA [None]
  - GAIT DISTURBANCE [None]
